FAERS Safety Report 17872044 (Version 1)
Quarter: 2020Q2

REPORT INFORMATION
  Report Type: Spontaneous
  Country: PL (occurrence: PL)
  Receive Date: 20200608
  Receipt Date: 20200608
  Transmission Date: 20200714
  Serious: Yes (Other)
  Sender: FDA-Public Use
  Company Number: PL-ROCHE-2611473

PATIENT
  Age: 66 Year
  Sex: Female

DRUGS (8)
  1. AZITHROMYCIN ANHYDROUS. [Concomitant]
     Active Substance: AZITHROMYCIN ANHYDROUS
     Indication: COVID-19 PNEUMONIA
     Route: 065
     Dates: start: 20200315
  2. OXYGEN. [Concomitant]
     Active Substance: OXYGEN
     Indication: OXYGEN THERAPY
     Route: 065
     Dates: start: 20200315
  3. LOPINAVIR;RITONAVIR [Suspect]
     Active Substance: LOPINAVIR\RITONAVIR
     Indication: COVID-19 PNEUMONIA
     Route: 065
     Dates: start: 20200321, end: 20200324
  4. OXYGEN. [Concomitant]
     Active Substance: OXYGEN
     Indication: COVID-19 PNEUMONIA
  5. OXYGEN. [Concomitant]
     Active Substance: OXYGEN
     Indication: COVID-19
  6. DROTAVERINE [Concomitant]
     Active Substance: DROTAVERINE
     Indication: COVID-19 PNEUMONIA
     Route: 065
     Dates: start: 20200315
  7. RIBAVIRIN. [Suspect]
     Active Substance: RIBAVIRIN
     Indication: COVID-19 PNEUMONIA
     Route: 065
     Dates: start: 20200321, end: 20200324
  8. AMOXICILLIN;CLAVULANIC ACID [Concomitant]
     Active Substance: AMOXICILLIN\CLAVULANIC ACID
     Indication: COVID-19 PNEUMONIA
     Route: 048
     Dates: start: 20200315

REACTIONS (3)
  - Intentional product use issue [Unknown]
  - Drug intolerance [Recovered/Resolved]
  - Off label use [Unknown]

NARRATIVE: CASE EVENT DATE: 20200324
